FAERS Safety Report 15377602 (Version 1)
Quarter: 2018Q3

REPORT INFORMATION
  Report Type: Spontaneous
  Country: US (occurrence: US)
  Receive Date: 20180913
  Receipt Date: 20180913
  Transmission Date: 20181010
  Serious: No
  Sender: FDA-Public Use
  Company Number: US-LPDUSPRD-20171287

PATIENT
  Age: 45 Year
  Sex: Male
  Weight: 131.09 kg

DRUGS (1)
  1. INJECTAFER [Suspect]
     Active Substance: FERRIC CARBOXYMALTOSE
     Dosage: 750 MG IN 50 ML 0.9%NACL,
     Route: 042
     Dates: start: 20170907, end: 20170914

REACTIONS (3)
  - Influenza like illness [Unknown]
  - Extravasation [Recovered/Resolved]
  - Injection site discolouration [Recovered/Resolved]

NARRATIVE: CASE EVENT DATE: 201709
